FAERS Safety Report 8472762-8 (Version None)
Quarter: 2012Q2

REPORT INFORMATION
  Report Type: 
  Country: None (occurrence: None)
  Receive Date: 20120627
  Receipt Date: 20120625
  Transmission Date: 20120825
  Serious: Yes (Life-Threatening)
  Sender: FDA-Public Use
  Company Number: PHHY2012TR054254

PATIENT

DRUGS (1)
  1. DIGOXIN [Suspect]
     Dosage: 03 BOXES OF DIGOXIN

REACTIONS (2)
  - SUICIDE ATTEMPT [None]
  - ARRHYTHMIA [None]
